FAERS Safety Report 5893159-0 (Version None)
Quarter: 2008Q3

REPORT INFORMATION
  Report Type: 
  Country: None (occurrence: None)
  Receive Date: 20080923
  Receipt Date: 20070830
  Transmission Date: 20090109
  Serious: No
  Sender: FDA-Public Use
  Company Number: US-ASTRAZENECA-2007UW20699

PATIENT
  Age: 26 Year
  Sex: Female
  Weight: 80.7 kg

DRUGS (2)
  1. SEROQUEL [Suspect]
     Route: 048
  2. THYROID MEDICATION [Concomitant]

REACTIONS (1)
  - ACTIVITIES OF DAILY LIVING IMPAIRED [None]
